FAERS Safety Report 6200342-3 (Version None)
Quarter: 2009Q2

REPORT INFORMATION
  Report Type: 
  Country: None (occurrence: None)
  Receive Date: 20090522
  Receipt Date: 20090520
  Transmission Date: 20091009
  Serious: Yes (Death, Hospitalization)
  Sender: FDA-Public Use
  Company Number: PHHO2009SK05916

PATIENT
  Sex: Female
  Weight: 75.1 kg

DRUGS (4)
  1. STARLIX DJN+TAB [Suspect]
     Indication: GLUCOSE TOLERANCE IMPAIRED
     Dosage: LEVEL 1
     Route: 048
  2. STARLIX DJN+TAB [Suspect]
     Dosage: LEVEL 2
     Route: 048
     Dates: end: 20081231
  3. VALSARTAN [Suspect]
     Indication: CARDIOVASCULAR DISORDER
     Dosage: LEVEL 1
     Route: 048
  4. VALSARTAN [Suspect]
     Dosage: LEVEL 2
     Route: 048
     Dates: end: 20081231

REACTIONS (6)
  - BRAIN NEOPLASM [None]
  - LOSS OF CONSCIOUSNESS [None]
  - MENINGIOMA [None]
  - NEUROSURGERY [None]
  - SYNCOPE [None]
  - VERTIGO [None]
